FAERS Safety Report 12334518 (Version 1)
Quarter: 2016Q2

REPORT INFORMATION
  Report Type: Spontaneous
  Country: GB (occurrence: GB)
  Receive Date: 20160504
  Receipt Date: 20160504
  Transmission Date: 20160815
  Serious: Yes (Other)
  Sender: FDA-Public Use
  Company Number: GB-TEVA-656128ACC

PATIENT
  Age: 17 Year
  Sex: Male
  Weight: 79 kg

DRUGS (11)
  1. DORNASE ALFA [Concomitant]
     Active Substance: DORNASE ALFA
  2. ORKAMBI [Interacting]
     Active Substance: IVACAFTOR\LUMACAFTOR
     Indication: CYSTIC FIBROSIS
  3. VITAMIN E SUBSTANCES [Concomitant]
  4. TOBRAMYCIN. [Suspect]
     Active Substance: TOBRAMYCIN
     Indication: CYSTIC FIBROSIS
     Route: 042
     Dates: start: 20160413, end: 20160414
  5. CREON [Concomitant]
     Active Substance: PANCRELIPASE AMYLASE\PANCRELIPASE LIPASE\PANCRELIPASE PROTEASE
     Dosage: 25000
  6. OMEPRAZOLE. [Concomitant]
     Active Substance: OMEPRAZOLE
  7. VITAMINS A AND D [Concomitant]
     Active Substance: LANOLIN\PETROLATUM
  8. TOBI PODHALER [Concomitant]
     Active Substance: TOBRAMYCIN
     Dosage: ALTERNATE MONTHS
  9. AVAMYS [Concomitant]
     Active Substance: FLUTICASONE FUROATE
  10. CEFTAZIDIME. [Concomitant]
     Active Substance: CEFTAZIDIME
     Dosage: WITHHELD.
     Route: 042
  11. COLOBREATHE [Concomitant]
     Dosage: ALTERNATE MONTHS

REACTIONS (3)
  - Drug interaction [Unknown]
  - Tinnitus [Unknown]
  - Discomfort [Unknown]

NARRATIVE: CASE EVENT DATE: 20160413
